FAERS Safety Report 9214776 (Version 2)
Quarter: 2013Q4

REPORT INFORMATION
  Report Type: Spontaneous
  Country: US (occurrence: US)
  Receive Date: 20130405
  Receipt Date: 20131226
  Transmission Date: 20140711
  Serious: Yes (Other)
  Sender: FDA-Public Use
  Company Number: US-BAYER-2013-041115

PATIENT
  Age: 39 Year
  Sex: Female
  Weight: 109.75 kg

DRUGS (4)
  1. YAZ [Suspect]
     Indication: ACNE
     Dosage: UNK
     Route: 048
  2. HYDROCHLOROTHIAZIDE [Concomitant]
     Indication: HYPERTENSION
     Dosage: 25 MG, QD
     Route: 048
     Dates: start: 20110326, end: 20111020
  3. PANTOPRAZOLE [Concomitant]
     Dosage: 40 MG, EVERY DAY
     Route: 048
     Dates: start: 20111018
  4. STOOL SOFTENER [Concomitant]
     Dosage: 2 TABLETS EVERY DAY
     Route: 048
     Dates: start: 20111018

REACTIONS (4)
  - Cholecystitis [None]
  - Pain [None]
  - Injury [None]
  - Pain [None]
